FAERS Safety Report 25499798 (Version 1)
Quarter: 2025Q2

REPORT INFORMATION
  Report Type: Spontaneous
  Country: US (occurrence: None)
  Receive Date: 20250630
  Receipt Date: 20250630
  Transmission Date: 20250716
  Serious: Yes (Other)
  Sender: FDA-CTU
  Company Number: None

PATIENT
  Age: 70 Year
  Sex: Male
  Weight: 111 kg

DRUGS (1)
  1. ERLEADA [Suspect]
     Active Substance: APALUTAMIDE

REACTIONS (4)
  - Peripheral swelling [None]
  - Blood glucose increased [None]
  - Skin ulcer [None]
  - Impaired healing [None]

NARRATIVE: CASE EVENT DATE: 20250530
